FAERS Safety Report 9859776 (Version 1)
Quarter: 2014Q1

REPORT INFORMATION
  Report Type: Spontaneous
  Country: US (occurrence: US)
  Receive Date: 20140131
  Receipt Date: 20140131
  Transmission Date: 20141002
  Serious: No
  Sender: FDA-Public Use
  Company Number: US-009507513-1401USA013467

PATIENT
  Sex: Male

DRUGS (1)
  1. ISENTRESS [Suspect]
     Dosage: 1 DF, Q12H
     Route: 048
     Dates: start: 201211

REACTIONS (3)
  - Drug dose omission [Unknown]
  - Product quality issue [Unknown]
  - No adverse event [Unknown]
